FAERS Safety Report 6700162-7 (Version None)
Quarter: 2010Q2

REPORT INFORMATION
  Report Type: 
  Country: None (occurrence: None)
  Receive Date: 20100428
  Receipt Date: 20100409
  Transmission Date: 20101027
  Serious: No
  Sender: FDA-Public Use
  Company Number: US-B.I. PHARMACEUTICALS,INC./RIDGEFIELD-2010-BP-04213BP

PATIENT
  Sex: Male

DRUGS (5)
  1. ZANTAC 150 [Suspect]
     Indication: DYSPEPSIA
     Route: 048
     Dates: start: 20090101
  2. ZANTAC 150 [Suspect]
  3. ZANTAC [Suspect]
     Indication: DYSPEPSIA
     Route: 048
     Dates: start: 20090101
  4. ZANTAC [Suspect]
  5. UNKNOWN STEROID INHALER [Concomitant]
     Indication: ASTHMA

REACTIONS (2)
  - OEDEMA PERIPHERAL [None]
  - PRURITUS [None]
